FAERS Safety Report 8788987 (Version 1)
Quarter: 2012Q4

REPORT INFORMATION
  Report Type: 
  Country: US (occurrence: US)
  Receive Date: 20120917
  Receipt Date: 20120917
  Transmission Date: 20130627
  Serious: Yes (Other)
  Sender: FDA-Public Use
  Company Number: US-PFIZER INC-2012228425

PATIENT

DRUGS (2)
  1. GEODON [Suspect]
     Dosage: UNK
  2. SEROQUEL [Suspect]
     Dosage: UNK

REACTIONS (1)
  - Electrocardiogram QT prolonged [Unknown]
